FAERS Safety Report 13871915 (Version 1)
Quarter: 2017Q3

REPORT INFORMATION
  Report Type: Spontaneous
  Country: US (occurrence: US)
  Receive Date: 20170816
  Receipt Date: 20170816
  Transmission Date: 20171127
  Serious: Yes (Death, Other)
  Sender: FDA-Public Use
  Company Number: US-PFIZER INC-2017350303

PATIENT
  Sex: Female

DRUGS (1)
  1. CHANTIX [Suspect]
     Active Substance: VARENICLINE TARTRATE
     Dosage: UNK

REACTIONS (6)
  - Death [Fatal]
  - Thinking abnormal [Unknown]
  - Mental disorder [Unknown]
  - Depression [Unknown]
  - Hip fracture [Unknown]
  - Suicidal ideation [Unknown]
